FAERS Safety Report 7602869-6 (Version None)
Quarter: 2011Q3

REPORT INFORMATION
  Report Type: 
  Country: None (occurrence: None)
  Receive Date: 20110711
  Receipt Date: 20110711
  Transmission Date: 20111222
  Serious: No
  Sender: FDA-Public Use
  Company Number: None

PATIENT
  Sex: Male
  Weight: 79.3795 kg

DRUGS (1)
  1. FINASTERIDE [Suspect]
     Indication: ALOPECIA
     Dosage: 1MG DAILY PO
     Route: 048
     Dates: start: 20080322

REACTIONS (6)
  - TESTICULAR PAIN [None]
  - TESTICULAR DISORDER [None]
  - EJACULATION DISORDER [None]
  - ERECTILE DYSFUNCTION [None]
  - ORGASMIC SENSATION DECREASED [None]
  - PENIS DISORDER [None]
